FAERS Safety Report 7133235-8 (Version None)
Quarter: 2010Q4

REPORT INFORMATION
  Report Type: 
  Country: None (occurrence: None)
  Receive Date: 20101117
  Receipt Date: 20101116
  Transmission Date: 20110411
  Serious: Yes (Disabling)
  Sender: FDA-Public Use
  Company Number: SP03191

PATIENT
  Age: 65 Year
  Sex: Female
  Weight: 53.978 kg

DRUGS (1)
  1. ANUSOL HC [Suspect]
     Indication: PRODUCT USED FOR UNKNOWN INDICATION
     Dosage: TOPICAL
     Route: 061

REACTIONS (3)
  - RASH [None]
  - RECTAL HAEMORRHAGE [None]
  - SWELLING [None]
